FAERS Safety Report 22303511 (Version 1)
Quarter: 2023Q2

REPORT INFORMATION
  Report Type: Spontaneous
  Country: US (occurrence: US)
  Receive Date: 20230510
  Receipt Date: 20230510
  Transmission Date: 20230722
  Serious: Yes (Other)
  Sender: FDA-Public Use
  Company Number: US-PFIZER INC-PV202300079528

PATIENT
  Age: 21 Year
  Sex: Female

DRUGS (3)
  1. BORTEZOMIB [Suspect]
     Active Substance: BORTEZOMIB
     Indication: Aplastic anaemia
     Dosage: UNK
  2. RITUXIMAB [Concomitant]
     Active Substance: RITUXIMAB
     Indication: Aplastic anaemia
     Dosage: UNK
  3. HUMAN IMMUNOGLOBULIN G [Concomitant]
     Active Substance: HUMAN IMMUNOGLOBULIN G
     Indication: Aplastic anaemia
     Dosage: UNK

REACTIONS (3)
  - Neuropathy peripheral [Recovered/Resolved]
  - Nervous system disorder [Recovered/Resolved]
  - Off label use [Unknown]
